FAERS Safety Report 24570977 (Version 1)
Quarter: 2024Q4

REPORT INFORMATION
  Report Type: Spontaneous
  Country: IT (occurrence: IT)
  Receive Date: 20241101
  Receipt Date: 20241101
  Transmission Date: 20250114
  Serious: Yes (Other)
  Sender: GLAXOSMITHKLINE
  Company Number: IT-GLAXOSMITHKLINE INC-IT2024EME133459

PATIENT

DRUGS (2)
  1. MEPOLIZUMAB [Suspect]
     Active Substance: MEPOLIZUMAB
     Indication: Chronic sinusitis
     Dosage: UNK
  2. MEPOLIZUMAB [Suspect]
     Active Substance: MEPOLIZUMAB
     Indication: Nasal polyps

REACTIONS (2)
  - Pemphigoid [Unknown]
  - Blister [Unknown]
